FAERS Safety Report 7083663-4 (Version None)
Quarter: 2010Q4

REPORT INFORMATION
  Report Type: 
  Country: None (occurrence: None)
  Receive Date: 20101104
  Receipt Date: 20101022
  Transmission Date: 20110411
  Serious: Yes (Other)
  Sender: FDA-Public Use
  Company Number: US-ELI_LILLY_AND_COMPANY-US201010005511

PATIENT
  Sex: Female
  Weight: 68.027 kg

DRUGS (10)
  1. CYMBALTA [Suspect]
     Dates: start: 20090101
  2. LIPITOR [Concomitant]
     Indication: BLOOD CHOLESTEROL
     Dosage: 40 MG, DAILY (1/D)
     Route: 048
     Dates: start: 20050101, end: 20100601
  3. AMARYL [Concomitant]
     Indication: DIABETES MELLITUS
     Dosage: 2 MG, UNK
  4. GLIMEPIRIDE [Concomitant]
     Indication: DIABETES MELLITUS
     Dosage: 2 MG, UNK
  5. TRAMADOL HCL [Concomitant]
     Indication: PAIN
     Dosage: 50 MG, UNK
  6. ICY HOT [Concomitant]
     Indication: PAIN
  7. TIGER BALM /00734101/ [Concomitant]
     Indication: PAIN
  8. CAMPHOR W/MENTHOL [Concomitant]
     Indication: PAIN
  9. LEVOTHROID [Concomitant]
     Dosage: 75 MG, UNK
  10. METOPROLOL [Concomitant]
     Dosage: 50 MG, UNK

REACTIONS (6)
  - HYPERSENSITIVITY [None]
  - INSOMNIA [None]
  - MOBILITY DECREASED [None]
  - PAIN IN EXTREMITY [None]
  - PRURITUS [None]
  - RASH [None]
